FAERS Safety Report 12364070 (Version 1)
Quarter: 2016Q2

REPORT INFORMATION
  Report Type: Spontaneous
  Country: US (occurrence: None)
  Receive Date: 20160512
  Receipt Date: 20160512
  Transmission Date: 20160815
  Serious: No
  Sender: FDA-Public Use
  Company Number: None

PATIENT
  Sex: Male

DRUGS (2)
  1. LANTUS [Suspect]
     Active Substance: INSULIN GLARGINE
  2. HUMULIN NOS [Suspect]
     Active Substance: INSULIN HUMAN

REACTIONS (4)
  - Asthenia [None]
  - Blood glucose decreased [None]
  - Syncope [None]
  - Drug dose omission [None]
